FAERS Safety Report 8322452-7 (Version None)
Quarter: 2012Q1

REPORT INFORMATION
  Report Type: 
  Country: None (occurrence: None)
  Receive Date: 20120315
  Receipt Date: 20110115
  Transmission Date: 20120608
  Serious: No
  Sender: FDA-Public Use
  Company Number: PHHY2011US03691

PATIENT
  Age: 43 Year
  Sex: Female
  Weight: 104.6 kg

DRUGS (5)
  1. TRAMADOL HYDROCHLORIDE [Concomitant]
  2. CYCLOBENZAPRINE [Concomitant]
  3. GABAPENTIN [Concomitant]
  4. CITALOPRAM HYDROBROMIDE [Concomitant]
  5. GILENYA [Suspect]
     Indication: MULTIPLE SCLEROSIS
     Dosage: 0.5 MG, DAILY, ORAL
     Route: 048
     Dates: start: 20101230

REACTIONS (3)
  - BACK PAIN [None]
  - MUSCULAR WEAKNESS [None]
  - PAIN IN EXTREMITY [None]
